FAERS Safety Report 15075399 (Version 1)
Quarter: 2018Q2

REPORT INFORMATION
  Report Type: Spontaneous
  Country: US (occurrence: US)
  Receive Date: 20180607
  Receipt Date: 20180607
  Transmission Date: 20180711
  Serious: Yes (Hospitalization)
  Sender: FDA-Public Use
  Company Number: None

PATIENT
  Age: 24 Year
  Sex: Female

DRUGS (15)
  1. SENSIPAR [Suspect]
     Active Substance: CINACALCET HYDROCHLORIDE
     Indication: ANAEMIA OF CHRONIC DISEASE
     Route: 048
     Dates: start: 20151002
  2. RENVELA [Concomitant]
     Active Substance: SEVELAMER CARBONATE
  3. SIMVASTATIN. [Concomitant]
     Active Substance: SIMVASTATIN
  4. AURYXIA [Concomitant]
     Active Substance: TETRAFERRIC TRICITRATE DECAHYDRATE
  5. CALCITRIOL. [Concomitant]
     Active Substance: CALCITRIOL
  6. VENTOLIN HFA [Concomitant]
     Active Substance: ALBUTEROL SULFATE
  7. LISINOPIRL [Concomitant]
  8. AMLODIPINE [Concomitant]
     Active Substance: AMLODIPINE BESYLATE
  9. EPOGEN [Concomitant]
     Active Substance: ERYTHROPOIETIN
  10. FLOVENT [Concomitant]
     Active Substance: FLUTICASONE PROPIONATE
  11. SENSIPAR [Suspect]
     Active Substance: CINACALCET HYDROCHLORIDE
     Indication: RENAL DISORDER
     Route: 048
     Dates: start: 20151002
  12. FERROUS SULF [Concomitant]
     Active Substance: FERROUS SULFATE
  13. GENTAMICIN. [Concomitant]
     Active Substance: GENTAMICIN
  14. METOPROLOL TARTRATE. [Concomitant]
     Active Substance: METOPROLOL TARTRATE
  15. MINOXIDIL. [Concomitant]
     Active Substance: MINOXIDIL

REACTIONS (3)
  - Surgery [None]
  - Dialysis [None]
  - Unevaluable event [None]

NARRATIVE: CASE EVENT DATE: 20180601
